FAERS Safety Report 7158250-X (Version None)
Quarter: 2010Q4

REPORT INFORMATION
  Report Type: 
  Country: None (occurrence: None)
  Receive Date: 20101214
  Receipt Date: 20100331
  Transmission Date: 20110411
  Serious: No
  Sender: FDA-Public Use
  Company Number: US-ASTRAZENECA-2010SE14181

PATIENT
  Age: 58 Year
  Sex: Female
  Weight: 61.2 kg

DRUGS (8)
  1. CRESTOR [Suspect]
     Route: 048
     Dates: start: 20070401, end: 20100330
  2. LEVOTHYROXINE [Concomitant]
     Indication: THYROID DISORDER
  3. TOPAMAX [Concomitant]
     Indication: MIGRAINE
  4. NEXIUM [Concomitant]
     Indication: GASTROOESOPHAGEAL REFLUX DISEASE
  5. PROSAC [Concomitant]
     Indication: DEPRESSION
  6. IMITREX [Concomitant]
     Indication: MIGRAINE
  7. FIOROCET [Concomitant]
     Indication: MIGRAINE
  8. CALCIUM AND VITAMIN D [Concomitant]

REACTIONS (4)
  - ARTHROPATHY [None]
  - HYPERTHYROIDISM [None]
  - PAIN IN EXTREMITY [None]
  - POST PROCEDURAL HYPOTHYROIDISM [None]
